FAERS Safety Report 18091358 (Version 1)
Quarter: 2020Q3

REPORT INFORMATION
  Report Type: Spontaneous
  Country: US (occurrence: US)
  Receive Date: 20200729
  Receipt Date: 20200729
  Transmission Date: 20201103
  Serious: No
  Sender: FDA-Public Use
  Company Number: None

PATIENT
  Sex: Female
  Weight: 72 kg

DRUGS (14)
  1. ALECENSA [Suspect]
     Active Substance: ALECTINIB HYDROCHLORIDE
     Indication: LUNG NEOPLASM MALIGNANT
     Route: 048
     Dates: start: 20180727
  2. ADVIL [Concomitant]
     Active Substance: IBUPROFEN
  3. GABAPENTIN. [Concomitant]
     Active Substance: GABAPENTIN
  4. GLUCOSAMINE?CHONDROITIN [Concomitant]
     Active Substance: CHONDROITIN SULFATE (BOVINE)\GLUCOSAMINE SULFATE
  5. GLUCOPHAGE [Concomitant]
     Active Substance: METFORMIN HYDROCHLORIDE
  6. TRAMADOL. [Concomitant]
     Active Substance: TRAMADOL
  7. LORATADINE. [Concomitant]
     Active Substance: LORATADINE
  8. JANUVIA [Concomitant]
     Active Substance: SITAGLIPTIN PHOSPHATE
  9. GINKGO BILOBA [Concomitant]
     Active Substance: GINKGO
  10. FISH OIL [Concomitant]
     Active Substance: FISH OIL
  11. CHOLECALCIFEROL [Concomitant]
     Active Substance: CHOLECALCIFEROL
  12. CALCIUM [Concomitant]
     Active Substance: CALCIUM
  13. VENTOLIN [Concomitant]
     Active Substance: ALBUTEROL SULFATE
  14. MULTIVITAMIN [Concomitant]
     Active Substance: VITAMINS

REACTIONS (2)
  - Thyroid cancer metastatic [None]
  - Bone cancer [None]
